FAERS Safety Report 11965301 (Version 2)
Quarter: 2016Q1

REPORT INFORMATION
  Report Type: Spontaneous
  Country: US (occurrence: US)
  Receive Date: 20160127
  Receipt Date: 20160210
  Transmission Date: 20160526
  Serious: No
  Sender: FDA-Public Use
  Company Number: US-BAYER-2016-011854

PATIENT
  Age: 36 Year
  Sex: Male
  Weight: 90.7 kg

DRUGS (1)
  1. ALEVE [Suspect]
     Active Substance: NAPROXEN SODIUM
     Indication: MYALGIA
     Dosage: UNK
     Dates: start: 2007, end: 201601

REACTIONS (19)
  - Ear pruritus [Recovered/Resolved]
  - Cheilitis [Recovered/Resolved]
  - Pruritus [Recovered/Resolved]
  - Genital rash [Recovered/Resolved]
  - Rash [Recovered/Resolved]
  - Rash [Recovered/Resolved]
  - Ear discomfort [Recovered/Resolved]
  - Pruritus genital [Recovered/Resolved]
  - Cheilitis [Recovered/Resolved]
  - Emotional distress [None]
  - Rash [None]
  - Lip pruritus [Recovered/Resolved]
  - Ear pruritus [Recovered/Resolved]
  - Genital burning sensation [Recovered/Resolved]
  - Genital rash [Recovered/Resolved]
  - Pruritus genital [Recovered/Resolved]
  - Genital burning sensation [Recovered/Resolved]
  - Lip pruritus [Recovered/Resolved]
  - Oral discomfort [Recovered/Resolved]

NARRATIVE: CASE EVENT DATE: 201511
